FAERS Safety Report 8969513 (Version 2)
Quarter: 2014Q3

REPORT INFORMATION
  Report Type: Spontaneous
  Country: US (occurrence: US)
  Receive Date: 20121218
  Receipt Date: 20140908
  Transmission Date: 20150326
  Serious: No
  Sender: FDA-Public Use
  Company Number: US-BRISTOL-MYERS SQUIBB COMPANY-16265357

PATIENT
  Age: 49 Year
  Sex: Female

DRUGS (5)
  1. ADDERALL XR [Concomitant]
     Active Substance: AMPHETAMINE ASPARTATE\AMPHETAMINE SULFATE\DEXTROAMPHETAMINE SACCHARATE\DEXTROAMPHETAMINE SULFATE
  2. NYSTATIN. [Concomitant]
     Active Substance: NYSTATIN
     Dosage: CREAM
  3. EFFEXOR [Concomitant]
     Active Substance: VENLAFAXINE HYDROCHLORIDE
  4. ABILIFY [Suspect]
     Active Substance: ARIPIPRAZOLE
     Indication: BIPOLAR I DISORDER
     Dosage: DOSE REDUCED TO 10MG AND 5 MG?LAST DOSE ON 15OCT13
     Route: 048
  5. XANAX [Concomitant]
     Active Substance: ALPRAZOLAM

REACTIONS (5)
  - Wrong technique in drug usage process [Unknown]
  - Restless legs syndrome [Recovered/Resolved]
  - Candida infection [Recovered/Resolved]
  - Urine odour abnormal [Recovered/Resolved]
  - Hepatic enzyme increased [Recovered/Resolved]
